FAERS Safety Report 16255833 (Version 1)
Quarter: 2019Q2

REPORT INFORMATION
  Report Type: Spontaneous
  Country: US (occurrence: US)
  Receive Date: 20190429
  Receipt Date: 20190429
  Transmission Date: 20190711
  Serious: Yes (Hospitalization)
  Sender: FDA-Public Use
  Company Number: None

PATIENT
  Age: 82 Year
  Sex: Female
  Weight: 52.2 kg

DRUGS (15)
  1. ERTAPENEM. [Suspect]
     Active Substance: ERTAPENEM SODIUM
     Indication: INFECTION
     Dosage: ?          OTHER ROUTE:IV INJECTION?
     Dates: start: 20190404, end: 20190409
  2. ELIQUIS [Concomitant]
     Active Substance: APIXABAN
  3. ATORVISTAN [Concomitant]
  4. ASPIRIN. [Concomitant]
     Active Substance: ASPIRIN
  5. PANTPROPAZONE [Concomitant]
  6. KLOR-CON [Concomitant]
     Active Substance: POTASSIUM CHLORIDE
  7. CEFTRIAXONE. [Concomitant]
     Active Substance: CEFTRIAXONE
  8. FLAGYL [Concomitant]
     Active Substance: METRONIDAZOLE\METRONIDAZOLE HYDROCHLORIDE
  9. ERTAPENEM. [Suspect]
     Active Substance: ERTAPENEM SODIUM
     Indication: JAW DISORDER
     Dosage: ?          OTHER ROUTE:IV INJECTION?
     Dates: start: 20190404, end: 20190409
  10. METOPROLOL. [Concomitant]
     Active Substance: METOPROLOL
  11. VITAMIN D3 [Concomitant]
     Active Substance: CHOLECALCIFEROL
  12. SULCRAFATE [Concomitant]
  13. SERTRALINE [Concomitant]
     Active Substance: SERTRALINE HYDROCHLORIDE
  14. FUROSEMIDE. [Concomitant]
     Active Substance: FUROSEMIDE
  15. MULTIVITAMIN IRON [Concomitant]

REACTIONS (3)
  - Sleep disorder [None]
  - Fall [None]
  - Hallucination, visual [None]

NARRATIVE: CASE EVENT DATE: 20190408
